FAERS Safety Report 14994222 (Version 2)
Quarter: 2018Q3

REPORT INFORMATION
  Report Type: Spontaneous
  Country: US (occurrence: US)
  Receive Date: 20180611
  Receipt Date: 20180723
  Transmission Date: 20181010
  Serious: Yes (Life-Threatening, Hospitalization, Other)
  Sender: FDA-Public Use
  Company Number: US-ZYDUS-020391

PATIENT
  Age: 4 Decade
  Sex: Female

DRUGS (5)
  1. VENLAFAXINE/VENLAFAXINE HYDROCHLORIDE [Suspect]
     Active Substance: VENLAFAXINE HYDROCHLORIDE
     Indication: MENTAL DISORDER
     Route: 065
  2. QUETIAPINE/QUETIAPINE FUMARATE [Interacting]
     Active Substance: QUETIAPINE FUMARATE
     Indication: BIPOLAR II DISORDER
     Dosage: AVERAGE DOSE OF 400 MG DAILY
     Route: 065
  3. CLONAZEPAM. [Concomitant]
     Active Substance: CLONAZEPAM
     Indication: MENTAL DISORDER
     Dosage: AS NEEDED
     Route: 065
  4. LAMOTRIGINE. [Concomitant]
     Active Substance: LAMOTRIGINE
     Indication: MENTAL DISORDER
     Route: 065
  5. LEVOTHYROXINE. [Concomitant]
     Active Substance: LEVOTHYROXINE
     Indication: PRODUCT USED FOR UNKNOWN INDICATION
     Route: 065

REACTIONS (14)
  - Coma [Recovering/Resolving]
  - Ventricular tachycardia [Unknown]
  - Left ventricular dysfunction [Unknown]
  - Electrocardiogram QT prolonged [Recovering/Resolving]
  - Syncope [Unknown]
  - Drug interaction [Recovering/Resolving]
  - Cardiac arrest [Recovering/Resolving]
  - Ventricular fibrillation [Recovering/Resolving]
  - Malaise [Unknown]
  - Unresponsive to stimuli [Unknown]
  - Treatment noncompliance [Unknown]
  - Drug dose omission [Unknown]
  - Sinus tachycardia [Unknown]
  - Torsade de pointes [Recovering/Resolving]
